FAERS Safety Report 10271735 (Version 2)
Quarter: 2014Q3

REPORT INFORMATION
  Report Type: Spontaneous
  Country: US (occurrence: US)
  Receive Date: 20140701
  Receipt Date: 20140717
  Transmission Date: 20150326
  Serious: Yes (Hospitalization)
  Sender: FDA-Public Use
  Company Number: US-SA-2014SA059765

PATIENT
  Age: 72 Year
  Sex: Female

DRUGS (5)
  1. CEREZYME [Suspect]
     Active Substance: IMIGLUCERASE
     Indication: GAUCHER^S DISEASE
     Route: 042
     Dates: start: 20061129, end: 2009
  2. CEREZYME [Suspect]
     Active Substance: IMIGLUCERASE
     Indication: GAUCHER^S DISEASE
     Dosage: DOSE:3200 UNIT(S)
     Route: 042
     Dates: start: 20140702
  3. CEREDASE [Suspect]
     Active Substance: ALGLUCERASE
     Indication: PRODUCT USED FOR UNKNOWN INDICATION
     Route: 065
  4. VELAGLUCERASE ALFA [Concomitant]
     Active Substance: VELAGLUCERASE ALFA
     Dates: start: 20101208
  5. CEREZYME [Suspect]
     Active Substance: IMIGLUCERASE
     Indication: GAUCHER^S DISEASE
     Route: 042
     Dates: end: 2010

REACTIONS (5)
  - Nervous system disorder [Unknown]
  - Serum ferritin increased [Unknown]
  - Chitotriosidase abnormal [Unknown]
  - Antibody test positive [Unknown]
  - Therapeutic response decreased [Unknown]
